FAERS Safety Report 19628119 (Version 3)
Quarter: 2021Q3

REPORT INFORMATION
  Report Type: Spontaneous
  Country: CA (occurrence: CA)
  Receive Date: 20210729
  Receipt Date: 20210910
  Transmission Date: 20211014
  Serious: Yes (Other)
  Sender: FDA-Public Use
  Company Number: CA-ORION CORPORATION ORION PHARMA-21_00015344

PATIENT
  Age: 67 Year
  Sex: Female
  Weight: 103 kg

DRUGS (29)
  1. SALBUTAMOL [Concomitant]
     Active Substance: ALBUTEROL
     Dosage: AS NEEDED
     Route: 065
  2. METHOTREXATE (TRADE NAME UNKNOWN) [Suspect]
     Active Substance: METHOTREXATE
     Indication: PRODUCT USED FOR UNKNOWN INDICATION
     Route: 065
     Dates: start: 202012
  3. VITAMIN D [COLECALCIFEROL] [Concomitant]
     Active Substance: CHOLECALCIFEROL
     Route: 065
  4. SALBUTAMOL [Concomitant]
     Active Substance: ALBUTEROL
     Dosage: AS NEEDED
     Route: 065
  5. CELEBREX [Concomitant]
     Active Substance: CELECOXIB
     Dosage: AS NEEDED
     Route: 065
  6. ROFACT (ROFECOXIB) [Concomitant]
     Route: 065
  7. HYDROXYCHLOROQUINE [Concomitant]
     Active Substance: HYDROXYCHLOROQUINE
     Route: 065
  8. PREDNISONE. [Concomitant]
     Active Substance: PREDNISONE
     Route: 065
     Dates: start: 202107
  9. TYLENOL [Concomitant]
     Active Substance: ACETAMINOPHEN
     Dosage: AS NEEDED
     Route: 065
  10. HYDROXYCHLOROQUINE [Concomitant]
     Active Substance: HYDROXYCHLOROQUINE
     Route: 065
  11. ALENDRONATE [Concomitant]
     Active Substance: ALENDRONATE SODIUM
     Route: 065
  12. CALCIUM [Concomitant]
     Active Substance: CALCIUM
     Route: 065
  13. CALCIUM [Concomitant]
     Active Substance: CALCIUM
     Route: 065
  14. SEEBRI BREEZHALER [Concomitant]
     Active Substance: GLYCOPYRROLATE
     Route: 065
  15. CELEBREX [Concomitant]
     Active Substance: CELECOXIB
     Dosage: AS NEEDED
     Route: 065
  16. TOPIRAMATE. [Concomitant]
     Active Substance: TOPIRAMATE
     Route: 065
  17. TOPIRAMATE. [Concomitant]
     Active Substance: TOPIRAMATE
     Route: 065
  18. SYNTHROID [Concomitant]
     Active Substance: LEVOTHYROXINE SODIUM
     Route: 065
  19. CITALOPRAM [Concomitant]
     Active Substance: CITALOPRAM HYDROBROMIDE
     Route: 065
  20. VITAMIN D [COLECALCIFEROL] [Concomitant]
     Active Substance: CHOLECALCIFEROL
     Route: 065
  21. ALENDRONATE [Concomitant]
     Active Substance: ALENDRONATE SODIUM
     Route: 065
  22. CITALOPRAM [Concomitant]
     Active Substance: CITALOPRAM HYDROBROMIDE
     Route: 065
  23. CORTISONE [Concomitant]
     Active Substance: CORTISONE
     Dosage: (10MG DIE)
     Route: 065
  24. ROFACT (ROFECOXIB) [Concomitant]
     Route: 065
  25. SEEBRI BREEZHALER [Concomitant]
     Active Substance: GLYCOPYRROLATE
     Route: 065
  26. PREDNISONE. [Concomitant]
     Active Substance: PREDNISONE
     Route: 065
     Dates: start: 202107
  27. FOLIC ACID. [Concomitant]
     Active Substance: FOLIC ACID
     Route: 065
  28. SYNTHROID [Concomitant]
     Active Substance: LEVOTHYROXINE SODIUM
     Route: 065
  29. TYLENOL [Concomitant]
     Active Substance: ACETAMINOPHEN
     Dosage: AS NEEDED
     Route: 065

REACTIONS (10)
  - Joint swelling [Not Recovered/Not Resolved]
  - Rheumatoid arthritis [Recovered/Resolved]
  - Oedema peripheral [Not Recovered/Not Resolved]
  - Pain in extremity [Not Recovered/Not Resolved]
  - Finger deformity [Unknown]
  - Arthralgia [Unknown]
  - Inflammation [Unknown]
  - Arthritis [Not Recovered/Not Resolved]
  - Nodule [Not Recovered/Not Resolved]
  - C-reactive protein increased [Unknown]

NARRATIVE: CASE EVENT DATE: 2021
